FAERS Safety Report 5356594-5 (Version None)
Quarter: 2007Q2

REPORT INFORMATION
  Report Type: 
  Country: None (occurrence: None)
  Receive Date: 20070614
  Receipt Date: 20070531
  Transmission Date: 20071010
  Serious: Yes (Hospitalization, Other)
  Sender: FDA-Public Use
  Company Number: PHBS2007TW09275

PATIENT
  Age: 25 Year
  Sex: Male

DRUGS (6)
  1. CYCLOSPORINE [Suspect]
     Indication: GRAFT VERSUS HOST DISEASE
     Route: 065
     Dates: start: 19980301
  2. CYCLOSPORINE [Suspect]
     Dosage: 250 MG/DAY
     Route: 065
     Dates: start: 20030101
  3. CYCLOSPORINE [Suspect]
     Dosage: 50 MG/DAY
     Route: 065
  4. DONOR LYMPHOCYTE INFUSION (DLI) [Concomitant]
     Indication: LEUKAEMIA RECURRENT
     Dates: start: 20030806
  5. DONOR LYMPHOCYTE INFUSION (DLI) [Concomitant]
     Dates: start: 20030814
  6. METHOTREXATE [Concomitant]
     Indication: BONE MARROW TRANSPLANT
     Route: 065

REACTIONS (11)
  - ANTINUCLEAR ANTIBODY POSITIVE [None]
  - BIOPSY MUSCLE ABNORMAL [None]
  - BLOOD CREATINE PHOSPHOKINASE INCREASED [None]
  - CHRONIC GRAFT VERSUS HOST DISEASE [None]
  - DYSPNOEA EXERTIONAL [None]
  - ELECTROMYOGRAM ABNORMAL [None]
  - HYPOTONIA [None]
  - MOUTH ULCERATION [None]
  - MUSCULAR WEAKNESS [None]
  - POLYMYOSITIS [None]
  - RASH [None]
